FAERS Safety Report 19987252 (Version 1)
Quarter: 2021Q4

REPORT INFORMATION
  Report Type: Spontaneous
  Country: IN (occurrence: IN)
  Receive Date: 20211022
  Receipt Date: 20211022
  Transmission Date: 20220303
  Serious: Yes (Life-Threatening, Hospitalization)
  Sender: FDA-Public Use
  Company Number: IN-GILEAD-2021-0553382

PATIENT
  Age: 65 Year
  Sex: Male

DRUGS (8)
  1. VEKLURY [Suspect]
     Active Substance: REMDESIVIR
     Indication: COVID-19
     Route: 065
  2. ITOLIZUMAB [Suspect]
     Active Substance: ITOLIZUMAB
     Indication: COVID-19
     Dosage: 100 MG
     Route: 042
  3. DEXAMETHASONE [Concomitant]
     Active Substance: DEXAMETHASONE
  4. HEPARIN CALCIUM [Concomitant]
     Active Substance: HEPARIN CALCIUM
  5. OXYGEN [Concomitant]
     Active Substance: OXYGEN
     Dosage: NIV, PO2/FIO2 RATIO OF 140
  6. OXYGEN [Concomitant]
     Active Substance: OXYGEN
     Dosage: FACE MASK ON THE EIGHTH DAY OF STAY
  7. HYDROCORTISONE [Concomitant]
     Active Substance: HYDROCORTISONE
  8. PHENIRAMINE [Concomitant]
     Active Substance: PHENIRAMINE

REACTIONS (1)
  - Atrioventricular block second degree [Recovered/Resolved]
